FAERS Safety Report 23699710 (Version 1)
Quarter: 2024Q2

REPORT INFORMATION
  Report Type: Spontaneous
  Country: CN (occurrence: CN)
  Receive Date: 20240403
  Receipt Date: 20240403
  Transmission Date: 20240716
  Serious: Yes (Other)
  Sender: FDA-Public Use
  Company Number: CN-PFIZER INC-PV202400042040

PATIENT
  Age: 48 Year
  Sex: Male
  Weight: 75 kg

DRUGS (4)
  1. AVIBACTAM SODIUM\CEFTAZIDIME [Suspect]
     Active Substance: AVIBACTAM SODIUM\CEFTAZIDIME
     Indication: Abdominal infection
     Dosage: FIRST ADMIN DATE: MAR 2024
     Route: 041
  2. AVIBACTAM SODIUM\CEFTAZIDIME [Suspect]
     Active Substance: AVIBACTAM SODIUM\CEFTAZIDIME
     Indication: Abdominal infection
     Dosage: TIME INTERVAL: 0.33333333 DAYS: 2.5 G, 3X/DAY (EVERY 8 HOURS)
     Route: 041
     Dates: start: 20240320, end: 20240321
  3. TIGECYCLINE [Concomitant]
     Active Substance: TIGECYCLINE
     Indication: Abdominal infection
     Dosage: 50 MG, 2X/DAY (EVERY 12 HOURS)
     Dates: start: 20240320
  4. CANCIDAS [Concomitant]
     Active Substance: CASPOFUNGIN ACETATE
     Indication: Anti-infective therapy
     Dosage: 50 MG, 1X/DAY
     Dates: start: 20240320

REACTIONS (2)
  - Depressed level of consciousness [Recovering/Resolving]
  - Confusional state [Recovering/Resolving]

NARRATIVE: CASE EVENT DATE: 20240321
